FAERS Safety Report 21310217 (Version 3)
Quarter: 2022Q4

REPORT INFORMATION
  Report Type: Spontaneous
  Country: CA (occurrence: CA)
  Receive Date: 20220909
  Receipt Date: 20221018
  Transmission Date: 20230113
  Serious: Yes (Other)
  Sender: FDA-Public Use
  Company Number: CA-CELLTRION INC.-2022CA014471

PATIENT

DRUGS (4)
  1. INFLECTRA [Suspect]
     Active Substance: INFLIXIMAB-DYYB
     Indication: Crohn^s disease
     Dosage: 500 MG EVERY 8 WEEK, WEEK 0,2,6 THEN Q 8 WEEKS
     Route: 042
     Dates: start: 20220520
  2. INFLECTRA [Suspect]
     Active Substance: INFLIXIMAB-DYYB
     Dosage: 500 MG EVERY 8 WEEK, WEEK 0,2,6 THEN Q 8 WEEKS
     Route: 042
     Dates: start: 20220825
  3. ENTOCORT [Concomitant]
     Active Substance: BUDESONIDE
     Dosage: 1 DF
  4. PANTOPRAZOLE SODIUM [Concomitant]
     Active Substance: PANTOPRAZOLE SODIUM
     Dosage: 1 DF

REACTIONS (10)
  - Malaise [Recovering/Resolving]
  - Erythema [Recovering/Resolving]
  - Anxiety [Recovering/Resolving]
  - Drug hypersensitivity [Not Recovered/Not Resolved]
  - Product preparation error [Unknown]
  - Incorrect drug administration rate [Unknown]
  - Gastroenteritis [Unknown]
  - Condition aggravated [Not Recovered/Not Resolved]
  - Poor venous access [Recovered/Resolved]
  - Vital functions abnormal [Recovered/Resolved]

NARRATIVE: CASE EVENT DATE: 20220801
